FAERS Safety Report 13435655 (Version 1)
Quarter: 2017Q2

REPORT INFORMATION
  Report Type: Spontaneous
  Country: US (occurrence: US)
  Receive Date: 20170412
  Receipt Date: 20170412
  Transmission Date: 20170830
  Serious: Yes (Disabling)
  Sender: FDA-Public Use
  Company Number: None

PATIENT
  Age: 46 Year
  Sex: Female
  Weight: 90 kg

DRUGS (3)
  1. DEXTROAMPHET SACCHARAT, AMPHET ASPARTATE, DEXTROAMPHET SULFATE AND AMPHET SULFAT [Suspect]
     Active Substance: AMPHETAMINE ASPARTATE\AMPHETAMINE SULFATE\DEXTROAMPHETAMINE SACCHARATE\DEXTROAMPHETAMINE SULFATE
     Indication: ATTENTION DEFICIT/HYPERACTIVITY DISORDER
     Dosage: ?          QUANTITY:90 TABLET(S);?
     Route: 048
  2. MULTI VITAMIN [Concomitant]
     Active Substance: VITAMINS
  3. MULTI MINERALS [Concomitant]
     Active Substance: MINERALS\VITAMINS

REACTIONS (7)
  - Product substitution issue [None]
  - Confusional state [None]
  - Dizziness [None]
  - Lethargy [None]
  - Abdominal discomfort [None]
  - Headache [None]
  - Feeling abnormal [None]

NARRATIVE: CASE EVENT DATE: 20170213
